FAERS Safety Report 8997961 (Version 2)
Quarter: 2013Q4

REPORT INFORMATION
  Report Type: Report from Study
  Country: JP (occurrence: JP)
  Receive Date: 20130104
  Receipt Date: 20131107
  Transmission Date: 20140711
  Serious: Yes (Hospitalization)
  Sender: FDA-Public Use
  Company Number: JP-VERTEX PHARMACEUTICALS INC.-2013-000144

PATIENT
  Age: 55 Year
  Sex: Female

DRUGS (11)
  1. VX-950 (TELAPREVIR) [Suspect]
     Indication: CHRONIC HEPATITIS C
     Dosage: 1500 MG, QD
     Route: 048
     Dates: start: 20120629
  2. URSO [Concomitant]
     Dosage: 600 MG, QD
     Route: 048
  3. PEGINTRON [Concomitant]
     Dosage: 1.5 ?G/KG, QW
     Route: 058
     Dates: start: 20120628, end: 20121109
  4. REBETOL [Concomitant]
     Dosage: 400 MG, QD
     Route: 048
     Dates: start: 20120628, end: 20120719
  5. REBETOL [Concomitant]
     Dosage: 200 MG, QD
     Route: 048
     Dates: start: 20120720
  6. REBETOL [Concomitant]
     Dosage: 400 MG, QD
     Route: 048
     Dates: start: 20121109, end: 20121115
  7. CONSTAN [Concomitant]
     Dosage: 0.4 MG, QD
     Route: 048
  8. POLYFUL [Concomitant]
     Dosage: 3000 MG, QD
     Route: 048
  9. POLYFUL [Concomitant]
     Dosage: 3000 MG, UNK
     Route: 048
  10. FLUVOXAMINE MALEATE [Concomitant]
     Dosage: 50 MG, QD
     Route: 048
  11. FLUVOXAMINE MALEATE [Concomitant]
     Dosage: 50 MG, UNK
     Route: 048

REACTIONS (1)
  - Liver disorder [Recovered/Resolved]
